FAERS Safety Report 5473765-8 (Version None)
Quarter: 2007Q3

REPORT INFORMATION
  Report Type: 
  Country: None (occurrence: None)
  Receive Date: 20070831
  Receipt Date: 20070622
  Transmission Date: 20080115
  Serious: No
  Sender: FDA-Public Use
  Company Number: 241824

PATIENT
  Age: 81 Year
  Sex: Male

DRUGS (4)
  1. LUCENTIS [Suspect]
     Indication: MACULAR DEGENERATION
     Dosage: INTRAVITREAL
     Route: 031
     Dates: start: 20070510
  2. GLYBURIDE [Concomitant]
  3. LISINOPRIL [Concomitant]
  4. PROTONIX [Concomitant]

REACTIONS (1)
  - EYE PAIN [None]
